FAERS Safety Report 8818933 (Version 1)
Quarter: 2012Q4

REPORT INFORMATION
  Report Type: Spontaneous
  Country: US (occurrence: None)
  Receive Date: 20121004
  Receipt Date: 20121004
  Transmission Date: 20130627
  Serious: Yes (Hospitalization)
  Sender: FDA-Public Use
  Company Number: None

PATIENT
  Age: 77 Year
  Sex: Male
  Weight: 63.05 kg

DRUGS (3)
  1. XARELTO [Suspect]
     Indication: ATRIAL FIBRILLATION
  2. ASPIRIN [Concomitant]
  3. PACKED RED BLOOD CELLS [Concomitant]

REACTIONS (2)
  - Gastrointestinal haemorrhage [None]
  - Asthenia [None]
